FAERS Safety Report 20801348 (Version 1)
Quarter: 2022Q2

REPORT INFORMATION
  Report Type: Spontaneous
  Country: US (occurrence: US)
  Receive Date: 20220509
  Receipt Date: 20220509
  Transmission Date: 20220721
  Serious: Yes (Hospitalization)
  Sender: FDA-Public Use
  Company Number: US-MYLANLABS-2022M1033565

PATIENT
  Age: 56 Year
  Sex: Male

DRUGS (2)
  1. HEPARIN [Suspect]
     Active Substance: HEPARIN SODIUM
     Indication: Catheter directed thrombolysis
     Dosage: UNK, QH,THE PATIENT RECEIVED 700 UNIT/HR HEPARIN
     Route: 065
     Dates: start: 2020
  2. ALTEPLASE [Suspect]
     Active Substance: ALTEPLASE
     Indication: Catheter directed thrombolysis
     Dosage: THE PATIENT RECEIVED INFUSION OF 0.5MG OF ALTEPLASE VIA TWO PORTS OF BOTH CATHETERS ....
     Route: 065
     Dates: start: 2020

REACTIONS (2)
  - Catheter site haemorrhage [Recovered/Resolved]
  - Haemoglobin decreased [Recovered/Resolved]

NARRATIVE: CASE EVENT DATE: 20200101
